FAERS Safety Report 7300105-1 (Version None)
Quarter: 2011Q1

REPORT INFORMATION
  Report Type: 
  Country: None (occurrence: None)
  Receive Date: 20110217
  Receipt Date: 20110214
  Transmission Date: 20110831
  Serious: Yes (Other)
  Sender: FDA-Public Use
  Company Number: US-GILEAD-2011-0036476

PATIENT
  Age: 26 Year
  Sex: Female

DRUGS (5)
  1. RITONAVIR [Concomitant]
     Indication: HIV INFECTION
     Dates: start: 20070701, end: 20101111
  2. COMBIVIR [Concomitant]
     Indication: HIV INFECTION
     Dates: start: 20101015
  3. TRUVADA [Suspect]
     Indication: HIV INFECTION
     Dates: start: 20070701, end: 20101014
  4. KALETRA [Concomitant]
     Indication: HIV INFECTION
     Dates: start: 20101112
  5. ATAZANAVIR [Concomitant]
     Indication: HIV INFECTION
     Dates: start: 20070701, end: 20101111

REACTIONS (2)
  - PREMATURE RUPTURE OF MEMBRANES [None]
  - ABORTION SPONTANEOUS [None]
